FAERS Safety Report 25819729 (Version 1)
Quarter: 2025Q3

REPORT INFORMATION
  Report Type: Spontaneous
  Country: US (occurrence: US)
  Receive Date: 20250918
  Receipt Date: 20250918
  Transmission Date: 20251021
  Serious: No
  Sender: INCYTE
  Company Number: US-EVENT-004248

PATIENT

DRUGS (1)
  1. OPZELURA [Suspect]
     Active Substance: RUXOLITINIB PHOSPHATE
     Indication: Vitiligo
     Dosage: UNK, QD

REACTIONS (5)
  - Off label use [Unknown]
  - Product physical issue [Unknown]
  - Product availability issue [Unknown]
  - Product dose omission issue [Unknown]
  - Product storage error [Unknown]
